FAERS Safety Report 16816538 (Version 2)
Quarter: 2019Q4

REPORT INFORMATION
  Report Type: Spontaneous
  Country: IT (occurrence: IT)
  Receive Date: 20190917
  Receipt Date: 20191120
  Transmission Date: 20200122
  Serious: Yes (Hospitalization)
  Sender: FDA-Public Use
  Company Number: IT-TEVA-2019-IT-1107133

PATIENT
  Age: 46 Year
  Sex: Female

DRUGS (3)
  1. ETOPOSIDE. [Suspect]
     Active Substance: ETOPOSIDE
     Indication: LUNG NEOPLASM MALIGNANT
     Route: 042
     Dates: start: 20181214
  2. DOXORUBICIN HYDROCHLORIDE. [Suspect]
     Active Substance: DOXORUBICIN HYDROCHLORIDE
     Indication: LUNG ADENOCARCINOMA
     Dosage: 1 DOSAGE FORMS
     Route: 042
     Dates: start: 20181214
  3. CISPLATIN. [Suspect]
     Active Substance: CISPLATIN
     Indication: LUNG ADENOCARCINOMA
     Dosage: 1 DOASAGE FORM
     Route: 042
     Dates: start: 20181214

REACTIONS (4)
  - Vomiting [Recovering/Resolving]
  - Nausea [Recovering/Resolving]
  - Asthenia [Recovering/Resolving]
  - Dyspepsia [Recovering/Resolving]

NARRATIVE: CASE EVENT DATE: 20190216
